FAERS Safety Report 9369495 (Version 1)
Quarter: 2013Q2

REPORT INFORMATION
  Report Type: Spontaneous
  Country: US (occurrence: None)
  Receive Date: 20130621
  Receipt Date: 20130621
  Transmission Date: 20140414
  Serious: Yes (Other)
  Sender: FDA-Public Use
  Company Number: DE-022337

PATIENT
  Sex: Female

DRUGS (1)
  1. LEUKERAN [Suspect]
     Indication: LEUKAEMIA

REACTIONS (2)
  - Haemorrhage [None]
  - Condition aggravated [None]
